FAERS Safety Report 15728820 (Version 1)
Quarter: 2018Q4

REPORT INFORMATION
  Report Type: Spontaneous
  Country: US (occurrence: US)
  Receive Date: 20181214
  Receipt Date: 20181214
  Transmission Date: 20190205
  Serious: Yes (Disabling)
  Sender: FDA-Public Use
  Company Number: None

PATIENT
  Age: 42 Year
  Sex: Female
  Weight: 75.6 kg

DRUGS (6)
  1. IMITREX [Concomitant]
     Active Substance: SUMATRIPTAN SUCCINATE
  2. ZANAFLEX [Concomitant]
     Active Substance: TIZANIDINE HYDROCHLORIDE
  3. ZOLOFT [Concomitant]
     Active Substance: SERTRALINE HYDROCHLORIDE
  4. AIMOVIG [Suspect]
     Active Substance: ERENUMAB-AOOE
     Indication: MIGRAINE
     Dosage: ?          QUANTITY:1 INJECTION(S);OTHER FREQUENCY:1 PER MONTH;?
     Route: 058
     Dates: start: 20181025, end: 20181025
  5. TROKENDI [Concomitant]
     Active Substance: TOPIRAMATE
  6. ADVIL [Concomitant]
     Active Substance: IBUPROFEN

REACTIONS (5)
  - Myalgia [None]
  - Loss of personal independence in daily activities [None]
  - Arthralgia [None]
  - Gait disturbance [None]
  - Muscle spasms [None]

NARRATIVE: CASE EVENT DATE: 20181105
